FAERS Safety Report 4661524-5 (Version None)
Quarter: 2005Q2

REPORT INFORMATION
  Report Type: 
  Country: None (occurrence: None)
  Receive Date: 20050512
  Receipt Date: 20050512
  Transmission Date: 20051028
  Serious: No
  Sender: FDA-Public Use
  Company Number: None

PATIENT
  Age: 55 Year
  Sex: Male

DRUGS (14)
  1. FUROSEMIDE [Suspect]
     Indication: CARDIAC FAILURE CONGESTIVE
     Dosage: 40 MG PO QAM
     Route: 048
     Dates: start: 20050324, end: 20050329
  2. LISINOPRIL [Suspect]
     Indication: CARDIAC FAILURE CONGESTIVE
     Dosage: 20 MG PO AD
     Route: 048
     Dates: start: 20050324, end: 20050429
  3. ASPIRIN [Concomitant]
  4. CARBAMIDE PEROXIDE [Concomitant]
  5. CLINDAMYCIN HCL [Concomitant]
  6. FUROSEMIDE [Concomitant]
  7. GLYBURIDE [Concomitant]
  8. LANCET [Concomitant]
  9. LISINOPRIL [Concomitant]
  10. METOPROLOL TARTRATE [Concomitant]
  11. ADALAT CC [Concomitant]
  12. PAD, ALCOHOL -SWABS [Concomitant]
  13. POTASSIUM CHLORIDE [Concomitant]
  14. PRECISON Q-I-D GLUCOSE TEST STRIP [Concomitant]

REACTIONS (1)
  - BLOOD CREATININE INCREASED [None]
